FAERS Safety Report 19103602 (Version 1)
Quarter: 2021Q2

REPORT INFORMATION
  Report Type: Spontaneous
  Country: AT (occurrence: AT)
  Receive Date: 20210407
  Receipt Date: 20210407
  Transmission Date: 20210717
  Serious: Yes (Other)
  Sender: FDA-Public Use
  Company Number: AT-PFIZER INC-2021341368

PATIENT
  Age: 58 Year
  Sex: Male

DRUGS (18)
  1. TEMESTA [LORAZEPAM] [Concomitant]
     Active Substance: LORAZEPAM
     Dosage: 1 MG
     Dates: start: 20201111, end: 20201111
  2. TEMESTA [LORAZEPAM] [Concomitant]
     Active Substance: LORAZEPAM
     Dosage: 2.5 MG
     Dates: start: 20201112, end: 20201201
  3. TEMESTA [LORAZEPAM] [Concomitant]
     Active Substance: LORAZEPAM
     Dosage: 1.5 MG
     Dates: start: 20201204, end: 20201214
  4. MIRTAZAPIN [Concomitant]
     Active Substance: MIRTAZAPINE
     Dosage: 30 MG
  5. RISPERDAL [Interacting]
     Active Substance: RISPERIDONE
     Dosage: 4 MG
     Dates: start: 20201107, end: 20201112
  6. TEMESTA [LORAZEPAM] [Concomitant]
     Active Substance: LORAZEPAM
     Dosage: 2.5 MG
     Dates: start: 20201104, end: 20201105
  7. TEMESTA [LORAZEPAM] [Concomitant]
     Active Substance: LORAZEPAM
     Dosage: 1.25 MG
     Dates: start: 20201106, end: 20201110
  8. VENLAFAXINE HCL [Suspect]
     Active Substance: VENLAFAXINE HYDROCHLORIDE
     Dosage: 37.5 MG
     Dates: start: 20201106, end: 20201107
  9. RISPERDAL [Interacting]
     Active Substance: RISPERIDONE
     Dosage: 2.5 MG
     Dates: start: 20201106, end: 20201106
  10. TEMESTA [LORAZEPAM] [Concomitant]
     Active Substance: LORAZEPAM
     Dosage: 2 MG
     Dates: start: 20201202, end: 20201203
  11. LAMOTRIGIN [Concomitant]
     Active Substance: LAMOTRIGINE
     Dosage: 25 MG
     Dates: start: 20201105, end: 20201113
  12. SEROQUEL XR [Interacting]
     Active Substance: QUETIAPINE FUMARATE
     Dosage: 100 MG
     Dates: start: 20201102, end: 20201122
  13. TEMESTA [LORAZEPAM] [Concomitant]
     Active Substance: LORAZEPAM
     Dosage: 1 MG
     Dates: start: 20201215
  14. LAMOTRIGIN [Concomitant]
     Active Substance: LAMOTRIGINE
     Dosage: 50 MG
     Dates: start: 20201114, end: 20201124
  15. LAMOTRIGIN [Concomitant]
     Active Substance: LAMOTRIGINE
     Dosage: 150 MG
     Dates: start: 20201210
  16. VENLAFAXINE HCL [Interacting]
     Active Substance: VENLAFAXINE HYDROCHLORIDE
     Dosage: 75 MG
     Dates: start: 20201108, end: 20201112
  17. TEMESTA [LORAZEPAM] [Concomitant]
     Active Substance: LORAZEPAM
     Dosage: 5 MG
     Dates: start: 20201102, end: 20201103
  18. LAMOTRIGIN [Concomitant]
     Active Substance: LAMOTRIGINE
     Dosage: 100 MG
     Dates: start: 20201125, end: 20201209

REACTIONS (2)
  - Ventricular extrasystoles [Recovered/Resolved]
  - Drug interaction [Unknown]

NARRATIVE: CASE EVENT DATE: 20201112
